FAERS Safety Report 7829015 (Version 5)
Quarter: 2014Q2

REPORT INFORMATION
  Report Type: Spontaneous
  Country: US (occurrence: US)
  Receive Date: 20110225
  Receipt Date: 20140502
  Transmission Date: 20141212
  Serious: Yes (Hospitalization, Other)
  Sender: FDA-Public Use
  Company Number: US-ROCHE-734135

PATIENT
  Age: 18 Year
  Sex: Male
  Weight: 86.2 kg

DRUGS (7)
  1. ACCUTANE [Suspect]
     Indication: ACNE
     Route: 065
     Dates: start: 19930101, end: 19940101
  2. ACCUTANE [Suspect]
     Route: 065
     Dates: start: 200910, end: 201005
  3. AMNESTEEM [Suspect]
     Indication: ACNE
     Route: 048
     Dates: start: 20091031, end: 201005
  4. CLARAVIS [Suspect]
     Indication: ACNE
     Route: 048
  5. ALDARA [Concomitant]
  6. KEFLEX [Concomitant]
  7. BACTROBAN [Concomitant]

REACTIONS (16)
  - Intestinal obstruction [Unknown]
  - Colitis ulcerative [Unknown]
  - Crohn^s disease [Unknown]
  - Gastrointestinal injury [Unknown]
  - Depression [Unknown]
  - Pouchitis [Unknown]
  - Anal fistula [Unknown]
  - Anal abscess [Unknown]
  - Fracture [Unknown]
  - Blood cholesterol increased [Unknown]
  - Hernia [Unknown]
  - Oral herpes [Unknown]
  - Tendonitis [Unknown]
  - Irritable bowel syndrome [Unknown]
  - Dry skin [Unknown]
  - Arthralgia [Unknown]
